FAERS Safety Report 6884380-3 (Version None)
Quarter: 2010Q3

REPORT INFORMATION
  Report Type: 
  Country: None (occurrence: None)
  Receive Date: 20100729
  Receipt Date: 20070711
  Transmission Date: 20110219
  Serious: No
  Sender: FDA-Public Use
  Company Number: US-PFIZER INC-2007057894

PATIENT
  Sex: Male

DRUGS (2)
  1. CELEBREX [Suspect]
  2. PROPANOLOL HCL [Interacting]

REACTIONS (2)
  - DRUG INTERACTION [None]
  - TINNITUS [None]
